FAERS Safety Report 8059050-9 (Version None)
Quarter: 2012Q1

REPORT INFORMATION
  Report Type: 
  Country: None (occurrence: None)
  Receive Date: 20120120
  Receipt Date: 20110615
  Transmission Date: 20120608
  Serious: No
  Sender: FDA-Public Use
  Company Number: US-BAUSCH-2011BL003540

PATIENT
  Age: 36 Year
  Sex: Male

DRUGS (1)
  1. ALAWAY [Suspect]
     Indication: ALLERGY TO ANIMAL
     Route: 047
     Dates: start: 20110422, end: 20110517

REACTIONS (1)
  - DRUG INEFFECTIVE [None]
